FAERS Safety Report 11803880 (Version 1)
Quarter: 2015Q4

REPORT INFORMATION
  Report Type: Spontaneous
  Country: FR (occurrence: FR)
  Receive Date: 20151204
  Receipt Date: 20151204
  Transmission Date: 20160305
  Serious: Yes (Other)
  Sender: FDA-Public Use
  Company Number: FR-JNJFOC-20151202259

PATIENT

DRUGS (2)
  1. IBRUTINIB [Suspect]
     Active Substance: IBRUTINIB
     Indication: CRYOGLOBULINAEMIA
     Route: 048
  2. IBRUTINIB [Suspect]
     Active Substance: IBRUTINIB
     Indication: CRYOGLOBULINAEMIA
     Route: 048

REACTIONS (4)
  - Product use issue [Unknown]
  - Epilepsy [Unknown]
  - Off label use [Unknown]
  - Therapeutic response unexpected [Unknown]
